FAERS Safety Report 10021849 (Version 6)
Quarter: 2017Q1

REPORT INFORMATION
  Report Type: Spontaneous
  Country: US (occurrence: US)
  Receive Date: 20140319
  Receipt Date: 20170309
  Transmission Date: 20170428
  Serious: Yes (Death, Hospitalization, Disabling, Other)
  Sender: FDA-Public Use
  Company Number: US-SANOFI-AVENTIS-2012SA058135

PATIENT
  Age: 76 Year
  Sex: Female

DRUGS (1)
  1. PLAVIX [Suspect]
     Active Substance: CLOPIDOGREL BISULFATE
     Indication: STENT PLACEMENT
     Route: 048
     Dates: start: 20100914, end: 20120106

REACTIONS (13)
  - Deformity [Unknown]
  - Rectal haemorrhage [Recovered/Resolved]
  - Death [Fatal]
  - Loss of employment [Unknown]
  - Pain [Unknown]
  - Anhedonia [Unknown]
  - Tension [Unknown]
  - Gastrointestinal haemorrhage [Recovered/Resolved]
  - Multiple injuries [Unknown]
  - Physical disability [Unknown]
  - Economic problem [Unknown]
  - Social problem [Unknown]
  - Psychological trauma [Unknown]

NARRATIVE: CASE EVENT DATE: 201201
